FAERS Safety Report 6015961-7 (Version None)
Quarter: 2008Q4

REPORT INFORMATION
  Report Type: 
  Country: None (occurrence: None)
  Receive Date: 20081216
  Receipt Date: 20080423
  Transmission Date: 20090506
  Serious: Yes (Other)
  Sender: FDA-Public Use
  Company Number: US-WYE-H03789708

PATIENT
  Age: 67 Year
  Sex: Male

DRUGS (2)
  1. EFFEXOR XR [Suspect]
     Dosage: 150 MG 1X PER 1 DAY, ORAL ; 75 MG 1X PER 1 DAY, ORAL
     Route: 048
     Dates: start: 20040201, end: 20040601
  2. EFFEXOR XR [Suspect]
     Dosage: 150 MG 1X PER 1 DAY, ORAL ; 75 MG 1X PER 1 DAY, ORAL
     Route: 048
     Dates: start: 20040601, end: 20041211

REACTIONS (2)
  - BLOOD PRESSURE INCREASED [None]
  - ISCHAEMIC CEREBRAL INFARCTION [None]
